FAERS Safety Report 17167596 (Version 1)
Quarter: 2019Q4

REPORT INFORMATION
  Report Type: Spontaneous
  Country: CA (occurrence: CA)
  Receive Date: 20191218
  Receipt Date: 20191218
  Transmission Date: 20200122
  Serious: Yes (Hospitalization, Other)
  Sender: FDA-Public Use
  Company Number: CA-ABBVIE-19K-028-3194556-00

PATIENT
  Sex: Female

DRUGS (4)
  1. INFLECTRA [Concomitant]
     Active Substance: INFLIXIMAB-DYYB
     Indication: COLITIS ULCERATIVE
     Route: 042
     Dates: start: 20191114
  2. IRON [Concomitant]
     Active Substance: IRON
     Indication: PRODUCT USED FOR UNKNOWN INDICATION
     Route: 042
  3. DEXILANT [Concomitant]
     Active Substance: DEXLANSOPRAZOLE
     Indication: PRODUCT USED FOR UNKNOWN INDICATION
  4. HUMIRA [Suspect]
     Active Substance: ADALIMUMAB
     Indication: PRODUCT USED FOR UNKNOWN INDICATION
     Route: 058

REACTIONS (10)
  - Colitis [Not Recovered/Not Resolved]
  - Pseudopolyposis [Unknown]
  - Hypophagia [Unknown]
  - Malaise [Unknown]
  - Large intestinal haemorrhage [Unknown]
  - Dilatation intrahepatic duct acquired [Unknown]
  - Hiatus hernia [Unknown]
  - Diarrhoea haemorrhagic [Not Recovered/Not Resolved]
  - Cytomegalovirus infection [Unknown]
  - Angiopathy [Unknown]
